FAERS Safety Report 6111975-7 (Version None)
Quarter: 2009Q1

REPORT INFORMATION
  Report Type: 
  Country: None (occurrence: None)
  Receive Date: 20090310
  Receipt Date: 20090223
  Transmission Date: 20090719
  Serious: Yes (Hospitalization)
  Sender: FDA-Public Use
  Company Number: 2009IL0004

PATIENT
  Sex: Female

DRUGS (1)
  1. ORFADIN [Suspect]
     Dosage: ORAL
     Route: 048
     Dates: start: 20051001

REACTIONS (1)
  - METABOLIC DISORDER [None]
